FAERS Safety Report 8638661 (Version 2)
Quarter: 2014Q1

REPORT INFORMATION
  Report Type: Spontaneous
  Country: US (occurrence: None)
  Receive Date: 20120323
  Receipt Date: 20130305
  Transmission Date: 20141002
  Serious: Yes (Other)
  Sender: FDA-Public Use
  Company Number: 163-21880-11091365

PATIENT
  Age: 76 Year
  Sex: Female
  Weight: 95.26 kg

DRUGS (16)
  1. REVLIMID [Suspect]
     Indication: PLASMA CELL MYELOMA
     Route: 048
     Dates: start: 20110816, end: 20110831
  2. TIOTROPIUM BROMIDE (TIOTROPIUM BROMIDE) [Concomitant]
  3. FISH OIL (FISH OIL) [Concomitant]
  4. VITAMIN E [Concomitant]
  5. ZOMETA (ZOLEDRONIC ACID) [Concomitant]
  6. SODIUM CHLORIDE [Concomitant]
  7. VICODIN [Concomitant]
  8. ANTIBIOTICS (ANTIBIOTICS) [Concomitant]
  9. FLUTICASONE PROPIONATE [Concomitant]
  10. PERCOCET (OXYCOCET) [Concomitant]
  11. ADVAIR (SERETIDE MITE) [Concomitant]
  12. SPIRIVA (TIOTROPIUM BROMIDE) [Concomitant]
  13. MVI (MVI) [Concomitant]
  14. ACETAMINOPHEN-HYDROCODONE (PROCET/USA/) (TABLETS) [Concomitant]
  15. MULTIVITAMINSI (MULTIVITAMINS) (TABLETS) [Concomitant]
  16. FLAXSEED OIL (LINSEED OIL) (CAPSULES) [Concomitant]

REACTIONS (2)
  - Hypersensitivity [None]
  - Rash pruritic [None]
